FAERS Safety Report 10749214 (Version 2)
Quarter: 2015Q1

REPORT INFORMATION
  Report Type: Spontaneous
  Country: US (occurrence: US)
  Receive Date: 20150129
  Receipt Date: 20150202
  Transmission Date: 20150721
  Serious: Yes (Other)
  Sender: FDA-Public Use
  Company Number: US-BAYER-2015-012073

PATIENT
  Age: 29 Year
  Sex: Female

DRUGS (10)
  1. HEPARIN [Suspect]
     Active Substance: HEPARIN SODIUM
  2. FUROSEMIDE. [Concomitant]
     Active Substance: FUROSEMIDE
     Indication: DYSPNOEA AT REST
  3. PHENYLEPHRINE HYDROCHLORIDE. [Suspect]
     Active Substance: PHENYLEPHRINE HYDROCHLORIDE
     Indication: VASOPRESSIVE THERAPY
  4. OXYGEN. [Concomitant]
     Active Substance: OXYGEN
     Dosage: 100 %, UNK
  5. ILOPROST [Suspect]
     Active Substance: ILOPROST
     Indication: EISENMENGER^S SYNDROME
     Route: 045
  6. LIDOCAINE. [Concomitant]
     Active Substance: LIDOCAINE
     Dosage: 15CC OF 2%
     Route: 008
  7. VASOPRESSIN. [Concomitant]
     Active Substance: VASOPRESSIN
     Indication: VASOPRESSIVE THERAPY
  8. OXYTOCIN. [Concomitant]
     Active Substance: OXYTOCIN
     Indication: INDUCTION OF CERVIX RIPENING
  9. NITRIC OXIDE. [Concomitant]
     Active Substance: NITRIC OXIDE
     Indication: HYPOXIA
     Dosage: 20 PPM
     Route: 045
  10. MILRINONE [Concomitant]
     Active Substance: MILRINONE
     Indication: VASOPRESSIVE THERAPY

REACTIONS (10)
  - Peritoneal haematoma [Recovered/Resolved]
  - Disseminated intravascular coagulation [Recovered/Resolved]
  - Labelled drug-drug interaction medication error [None]
  - Procedural haemorrhage [None]
  - Exposure during pregnancy [None]
  - Acute kidney injury [None]
  - Product use issue [None]
  - Caesarean section [None]
  - Cardiogenic shock [Recovered/Resolved]
  - Respiratory failure [Recovered/Resolved]
